FAERS Safety Report 19149849 (Version 2)
Quarter: 2021Q2

REPORT INFORMATION
  Report Type: Report from Study
  Country: GR (occurrence: GR)
  Receive Date: 20210417
  Receipt Date: 20210427
  Transmission Date: 20210717
  Serious: Yes (Hospitalization)
  Sender: FDA-Public Use
  Company Number: GR-TAKEDA-2021TUS023592

PATIENT
  Age: 12 Year
  Sex: Male
  Weight: 32 kg

DRUGS (23)
  1. HUMAN IMMUNOGLOBULIN; HYALURONIDASE [Suspect]
     Active Substance: HUMAN IMMUNOGLOBULIN G\HYALURONIDASE RECOMBINANT HUMAN
     Dosage: 625 MILLIGRAM/KILOGRAM, Q4WEEKS
     Route: 042
     Dates: start: 20201104, end: 20201104
  2. HUMAN IMMUNOGLOBULIN; HYALURONIDASE [Suspect]
     Active Substance: HUMAN IMMUNOGLOBULIN G\HYALURONIDASE RECOMBINANT HUMAN
     Dosage: 625 MILLIGRAM/KILOGRAM, Q4WEEKS
     Route: 042
     Dates: start: 20200120, end: 20200120
  3. AUGMENTINE [AMOXICILLIN TRIHYDRATE;CLAVULANATE POTASSIUM] [Concomitant]
     Active Substance: AMOXICILLIN\CLAVULANATE POTASSIUM
     Dosage: 6.5 UNK, TID
     Route: 048
     Dates: start: 20190416, end: 20190425
  4. HUMAN IMMUNOGLOBULIN; HYALURONIDASE [Suspect]
     Active Substance: HUMAN IMMUNOGLOBULIN G\HYALURONIDASE RECOMBINANT HUMAN
     Dosage: 625 MILLIGRAM/KILOGRAM, Q4WEEKS
     Route: 042
     Dates: start: 20190304, end: 20190304
  5. AUGMENTINE [AMOXICILLIN TRIHYDRATE;CLAVULANATE POTASSIUM] [Concomitant]
     Active Substance: AMOXICILLIN\CLAVULANATE POTASSIUM
     Dosage: 6.5 UNK, TID
     Route: 048
     Dates: start: 20190812, end: 20190826
  6. COTRIM [Concomitant]
     Active Substance: SULFAMETHOXAZOLE\TRIMETHOPRIM
     Indication: PROPHYLAXIS
     Dosage: 5.5 UNK, BID
     Route: 048
     Dates: start: 20190910, end: 20200522
  7. FUSICORT [Concomitant]
     Indication: ARTHROPOD BITE
     Dosage: 0.5 UNK, TID
     Route: 061
     Dates: start: 20190727, end: 20190729
  8. HUMAN IMMUNOGLOBULIN; HYALURONIDASE [Suspect]
     Active Substance: HUMAN IMMUNOGLOBULIN G\HYALURONIDASE RECOMBINANT HUMAN
     Dosage: 625 MILLIGRAM/KILOGRAM, Q4WEEKS
     Route: 042
     Dates: start: 20190812, end: 20190812
  9. HUMAN IMMUNOGLOBULIN; HYALURONIDASE [Suspect]
     Active Substance: HUMAN IMMUNOGLOBULIN G\HYALURONIDASE RECOMBINANT HUMAN
     Dosage: 625 MILLIGRAM/KILOGRAM, Q4WEEKS
     Route: 042
     Dates: start: 20200120, end: 20200120
  10. AUGMENTINE [AMOXICILLIN TRIHYDRATE;CLAVULANATE POTASSIUM] [Concomitant]
     Active Substance: AMOXICILLIN\CLAVULANATE POTASSIUM
     Indication: BRONCHIECTASIS
     Dosage: 01.00 GRAM, TID
     Route: 042
     Dates: start: 20191105, end: 20191106
  11. AUGMENTINE [AMOXICILLIN TRIHYDRATE;CLAVULANATE POTASSIUM] [Concomitant]
     Active Substance: AMOXICILLIN\CLAVULANATE POTASSIUM
     Indication: LOWER RESPIRATORY TRACT INFECTION
     Dosage: 550 MILLIGRAM
     Route: 048
     Dates: start: 20191107, end: 20191118
  12. ALGOFREN [Concomitant]
     Indication: VIRAL UPPER RESPIRATORY TRACT INFECTION
     Dosage: 10 UNK, TID
     Route: 048
     Dates: start: 20190504, end: 20190505
  13. AMOXIL [AMOXICILLIN SODIUM] [Concomitant]
     Indication: ACUTE SINUSITIS
     Dosage: 4 UNK, TID
     Route: 048
     Dates: start: 20190416, end: 20190425
  14. ZITHROMAX [Concomitant]
     Active Substance: AZITHROMYCIN DIHYDRATE
     Indication: LOWER RESPIRATORY TRACT INFECTION
     Dosage: 12.5 UNK, QD
     Route: 048
     Dates: start: 20190510, end: 20190610
  15. HUMAN IMMUNOGLOBULIN; HYALURONIDASE [Suspect]
     Active Substance: HUMAN IMMUNOGLOBULIN G\HYALURONIDASE RECOMBINANT HUMAN
     Indication: PRODUCT USED FOR UNKNOWN INDICATION
     Dosage: 625 MILLIGRAM/KILOGRAM, Q4WEEKS
     Route: 042
     Dates: start: 20190304, end: 20190304
  16. HUMAN IMMUNOGLOBULIN; HYALURONIDASE [Suspect]
     Active Substance: HUMAN IMMUNOGLOBULIN G\HYALURONIDASE RECOMBINANT HUMAN
     Dosage: 625 MILLIGRAM/KILOGRAM, Q4WEEKS
     Route: 042
     Dates: start: 20190812, end: 20190812
  17. AMOXICILLIN/CLAVULANIC ACID [Concomitant]
     Active Substance: AMOXICILLIN\CLAVULANIC ACID
     Indication: SINUSITIS
     Dosage: 01.00 GRAM, BID
     Route: 048
     Dates: start: 20190223, end: 20190304
  18. HUMAN IMMUNOGLOBULIN; HYALURONIDASE [Suspect]
     Active Substance: HUMAN IMMUNOGLOBULIN G\HYALURONIDASE RECOMBINANT HUMAN
     Dosage: 625 MILLIGRAM/KILOGRAM, Q4WEEKS
     Route: 042
     Dates: start: 20190520, end: 20190520
  19. HUMAN IMMUNOGLOBULIN; HYALURONIDASE [Suspect]
     Active Substance: HUMAN IMMUNOGLOBULIN G\HYALURONIDASE RECOMBINANT HUMAN
     Dosage: 625 MILLIGRAM/KILOGRAM, Q4WEEKS
     Route: 042
     Dates: start: 20190520, end: 20190520
  20. HUMAN IMMUNOGLOBULIN; HYALURONIDASE [Suspect]
     Active Substance: HUMAN IMMUNOGLOBULIN G\HYALURONIDASE RECOMBINANT HUMAN
     Dosage: 625 MILLIGRAM/KILOGRAM, Q4WEEKS
     Route: 042
     Dates: start: 20191104, end: 20191104
  21. CEFTRIAXONE. [Concomitant]
     Active Substance: CEFTRIAXONE
     Indication: SINUSITIS
     Dosage: 02.50 GRAM, QD
     Route: 042
     Dates: start: 20190415, end: 20190416
  22. ZITHROMAX [Concomitant]
     Active Substance: AZITHROMYCIN DIHYDRATE
     Dosage: 7.5 UNK, QD
     Route: 048
     Dates: start: 20190812, end: 20190816
  23. XOZAL [Concomitant]
     Active Substance: LEVOCETIRIZINE
     Indication: HYPERSENSITIVITY
     Dosage: 20 UNK, QD
     Route: 048
     Dates: start: 20190712, end: 20190714

REACTIONS (1)
  - Acute sinusitis [Recovered/Resolved]

NARRATIVE: CASE EVENT DATE: 20190415
